FAERS Safety Report 16426603 (Version 1)
Quarter: 2019Q2

REPORT INFORMATION
  Report Type: Spontaneous
  Country: US (occurrence: US)
  Receive Date: 20190613
  Receipt Date: 20190613
  Transmission Date: 20190711
  Serious: No
  Sender: FDA-Public Use
  Company Number: US-BAUSCH-BL-2019-016445

PATIENT
  Sex: Female

DRUGS (1)
  1. DILTIAZEM HCL EXTENDED-RELEASE TABLETS [Suspect]
     Active Substance: DILTIAZEM HYDROCHLORIDE
     Indication: PRODUCT USED FOR UNKNOWN INDICATION
     Dosage: EXTENDED-RELEASE TABLETS
     Route: 048

REACTIONS (2)
  - Hypoaesthesia oral [Unknown]
  - Dry mouth [Unknown]
